FAERS Safety Report 18099071 (Version 1)
Quarter: 2020Q3

REPORT INFORMATION
  Report Type: Spontaneous
  Country: US (occurrence: US)
  Receive Date: 20200731
  Receipt Date: 20200731
  Transmission Date: 20201103
  Serious: No
  Sender: FDA-Public Use
  Company Number: US-BAUSCH-BL-2020-020317

PATIENT
  Sex: Male

DRUGS (2)
  1. CARDIZEM CD [Suspect]
     Active Substance: DILTIAZEM HYDROCHLORIDE
     Indication: ATRIAL FIBRILLATION
  2. CARDIZEM CD [Suspect]
     Active Substance: DILTIAZEM HYDROCHLORIDE
     Indication: HEART RATE ABNORMAL
     Dosage: HAD BEEN ON USING THIS MEDICATION FOR YEARS
     Route: 048

REACTIONS (6)
  - Illness [Unknown]
  - Extra dose administered [Unknown]
  - Hyperhidrosis [Unknown]
  - Chest discomfort [Unknown]
  - Heart rate abnormal [Unknown]
  - Dizziness [Unknown]
